FAERS Safety Report 20654852 (Version 1)
Quarter: 2022Q1

REPORT INFORMATION
  Report Type: Spontaneous
  Country: US (occurrence: None)
  Receive Date: 20220329
  Receipt Date: 20220329
  Transmission Date: 20220424
  Serious: Yes (Hospitalization)
  Sender: FDA-Public Use
  Company Number: None

PATIENT
  Age: 66 Year
  Sex: Female

DRUGS (1)
  1. AMBRISENTAN [Suspect]
     Active Substance: AMBRISENTAN
     Indication: Product used for unknown indication
     Dosage: FREQUENCY : DAILY;?
     Route: 048
     Dates: start: 20200421

REACTIONS (5)
  - COVID-19 [None]
  - Cardiac disorder [None]
  - Pneumonia [None]
  - Colon cancer stage IV [None]
  - Therapy interrupted [None]

NARRATIVE: CASE EVENT DATE: 20220109
